FAERS Safety Report 6239192-0 (Version None)
Quarter: 2009Q2

REPORT INFORMATION
  Report Type: 
  Country: None (occurrence: None)
  Receive Date: 20090617
  Receipt Date: 20080331
  Transmission Date: 20091009
  Serious: No
  Sender: FDA-Public Use
  Company Number: 273630

PATIENT
  Sex: Female

DRUGS (1)
  1. LEVEMIR [Suspect]
     Indication: DIABETES MELLITUS
     Dates: start: 20071001

REACTIONS (2)
  - PRURITUS GENERALISED [None]
  - RASH [None]
